FAERS Safety Report 18326166 (Version 2)
Quarter: 2020Q4

REPORT INFORMATION
  Report Type: Spontaneous
  Country: US (occurrence: US)
  Receive Date: 20200929
  Receipt Date: 20201020
  Transmission Date: 20210113
  Serious: Yes (Other)
  Sender: FDA-Public Use
  Company Number: US-ASTRAZENECA-2020SF24068

PATIENT
  Age: 898 Month
  Sex: Female
  Weight: 70 kg

DRUGS (2)
  1. BYDUREON BCISE [Suspect]
     Active Substance: EXENATIDE
     Indication: DIABETES MELLITUS
     Route: 065
  2. BYDUREON [Suspect]
     Active Substance: EXENATIDE
     Indication: DIABETES MELLITUS
     Route: 065

REACTIONS (2)
  - Device issue [Unknown]
  - Deafness [Not Recovered/Not Resolved]

NARRATIVE: CASE EVENT DATE: 201912
